FAERS Safety Report 13861856 (Version 2)
Quarter: 2017Q3

REPORT INFORMATION
  Report Type: Spontaneous
  Country: US (occurrence: US)
  Receive Date: 20170811
  Receipt Date: 20170823
  Transmission Date: 20171127
  Serious: Yes (Other)
  Sender: FDA-Public Use
  Company Number: US-BAUSCH-BL-2017-023286

PATIENT
  Sex: Female
  Weight: 68.1 kg

DRUGS (1)
  1. MURO 128 [Suspect]
     Active Substance: SODIUM CHLORIDE
     Indication: DRY EYE
     Dosage: JUST PRIOR TO BED
     Route: 065
     Dates: start: 201707

REACTIONS (5)
  - Middle insomnia [Unknown]
  - Bacterial infection [Recovered/Resolved]
  - Vaginal haemorrhage [Recovered/Resolved]
  - Initial insomnia [Not Recovered/Not Resolved]
  - Restlessness [Not Recovered/Not Resolved]

NARRATIVE: CASE EVENT DATE: 2017
